FAERS Safety Report 15007749 (Version 2)
Quarter: 2018Q2

REPORT INFORMATION
  Report Type: Spontaneous
  Country: FR (occurrence: FR)
  Receive Date: 20180613
  Receipt Date: 20180619
  Transmission Date: 20180711
  Serious: Yes (Life-Threatening, Hospitalization, Other)
  Sender: FDA-Public Use
  Company Number: FR-BAUSCH-BL-2018-016691

PATIENT
  Age: 45 Year
  Sex: Male
  Weight: 86 kg

DRUGS (10)
  1. DEXAMETHASONE. [Suspect]
     Active Substance: DEXAMETHASONE
     Indication: PLASMA CELL MYELOMA
     Dosage: ROUTE EITHER ORAL OR INTRAVENOUS
     Route: 065
     Dates: start: 20151215, end: 20160322
  2. THALIDOMIDE [Suspect]
     Active Substance: THALIDOMIDE
     Indication: PLASMA CELL MYELOMA
     Route: 048
     Dates: start: 20151215, end: 20160406
  3. DARATUMUMAB [Suspect]
     Active Substance: DARATUMUMAB
     Indication: PLASMA CELL MYELOMA
     Dosage: 1296 MG PER WEEK
     Route: 042
     Dates: start: 20151215, end: 20160322
  4. VELCADE [Suspect]
     Active Substance: BORTEZOMIB
     Indication: PLASMA CELL MYELOMA
     Dosage: DOSAGE FORM: LYOPHILIZED POWDER, 5044 MICROGRAM PER WEEK, ON DAYS 1, 4, 8 AND 11
     Route: 058
     Dates: start: 20151215, end: 20160318
  5. MAGNESIUM [Concomitant]
     Active Substance: MAGNESIUM
     Indication: MUSCLE SPASMS
     Route: 065
     Dates: start: 20160216
  6. MELPHALAN. [Suspect]
     Active Substance: MELPHALAN
     Indication: PRODUCT USED FOR UNKNOWN INDICATION
     Route: 065
  7. WELLVONE [Concomitant]
     Active Substance: ATOVAQUONE
     Indication: INFECTION
     Route: 065
     Dates: start: 20151229
  8. LEDERFOLINE [Concomitant]
     Active Substance: LEUCOVORIN CALCIUM
     Indication: ADVERSE DRUG REACTION
     Route: 065
     Dates: start: 20151120
  9. ZELITREX [Concomitant]
     Active Substance: VALACYCLOVIR HYDROCHLORIDE
     Indication: INFECTION
     Route: 065
     Dates: start: 20151120
  10. TOBRADEX [Concomitant]
     Active Substance: DEXAMETHASONE\TOBRAMYCIN
     Indication: EYE DISCHARGE
     Route: 065
     Dates: start: 1989

REACTIONS (3)
  - Neutropenia [Unknown]
  - Cellulitis staphylococcal [Recovered/Resolved]
  - Sepsis [Recovered/Resolved]

NARRATIVE: CASE EVENT DATE: 20160507
